FAERS Safety Report 4998844-0 (Version None)
Quarter: 2006Q2

REPORT INFORMATION
  Report Type: 
  Country: None (occurrence: None)
  Receive Date: 20060510
  Receipt Date: 20050818
  Transmission Date: 20061013
  Serious: Yes (Hospitalization, Other)
  Sender: FDA-Public Use
  Company Number: US-MERCK-0508USA03450

PATIENT
  Age: 56 Year
  Sex: Female
  Weight: 100 kg

DRUGS (1)
  1. VIOXX [Suspect]
     Indication: RHEUMATOID ARTHRITIS
     Route: 048
     Dates: start: 19990719, end: 20020708

REACTIONS (10)
  - CEREBROVASCULAR ACCIDENT [None]
  - CHRONIC OBSTRUCTIVE PULMONARY DISEASE [None]
  - CONVULSION [None]
  - HEART RATE IRREGULAR [None]
  - INTESTINAL FUNCTIONAL DISORDER [None]
  - JOINT INJURY [None]
  - NEPHROLITHIASIS [None]
  - OEDEMA PERIPHERAL [None]
  - SHOULDER PAIN [None]
  - TRANSIENT ISCHAEMIC ATTACK [None]
